FAERS Safety Report 9297599 (Version 2)
Quarter: 2013Q2

REPORT INFORMATION
  Report Type: Spontaneous
  Country: US (occurrence: US)
  Receive Date: 20130520
  Receipt Date: 20130605
  Transmission Date: 20140414
  Serious: No
  Sender: FDA-Public Use
  Company Number: US-PFIZER INC-2013153408

PATIENT
  Age: 55 Year
  Sex: Female
  Weight: 74.83 kg

DRUGS (5)
  1. CHANTIX [Suspect]
     Indication: SMOKING CESSATION THERAPY
     Dosage: UNK
     Route: 048
  2. AMPHETAMINE/DEXTROAMPHETAMINE [Concomitant]
     Dosage: 45 MG (ONE AND A HALF OF 30MG TABLET), 1X/DAY
  3. SERTRALINE [Concomitant]
     Dosage: 100 MG, 2X/DAY
     Route: 048
  4. TRAZODONE [Concomitant]
     Dosage: 300 MG (TWO TABLETS OF TRAZODONE 150MG), 1X/DAY
  5. OMEPRAZOLE [Concomitant]
     Indication: GASTROOESOPHAGEAL REFLUX DISEASE
     Dosage: UNK, 1X/DAY
     Route: 048

REACTIONS (2)
  - Blood cholesterol increased [Unknown]
  - Thyroid function test abnormal [Unknown]
